FAERS Safety Report 17960393 (Version 1)
Quarter: 2020Q2

REPORT INFORMATION
  Report Type: Spontaneous
  Country: DK (occurrence: DK)
  Receive Date: 20200629
  Receipt Date: 20200629
  Transmission Date: 20200714
  Serious: Yes (Other)
  Sender: FDA-Public Use
  Company Number: NVSC2020DK175560

PATIENT
  Age: 28 Year
  Sex: Male

DRUGS (14)
  1. ZYPREXA [Suspect]
     Active Substance: OLANZAPINE
     Indication: SCHIZOPHRENIA
     Dosage: UNK (STRYKE: UKENDT, DOSIS: UKENDT)
     Route: 065
  2. CIPRALEX [Concomitant]
     Active Substance: ESCITALOPRAM OXALATE
     Indication: PRODUCT USED FOR UNKNOWN INDICATION
     Dosage: UNK (STARTDATO UKENDT, MEN INDEN SEPTEMBER 2009, STRYKE: 10 MG, DOSIS: UKENDT)
     Route: 065
  3. ZELDOX [Concomitant]
     Active Substance: ZIPRASIDONE
     Indication: SCHIZOPHRENIA
     Dosage: UNK (UKENDT STARTDATO, MEN I HVERT FALD F?R SEPTEMBER 2009, STYRKE: UKENDT, DOSIS: 40:0:80 MG)
     Route: 065
  4. RISPERIDONE. [Suspect]
     Active Substance: RISPERIDONE
     Indication: SCHIZOPHRENIA
     Dosage: UNK (STARTDATO UKENDT, MEN I HVERT FALD SENEST SEPTEMBER 2009, STRYKE: UKENDT, DOSIS: VARIERENDE)
     Route: 065
     Dates: end: 20181205
  5. ZOLPIDEM [Concomitant]
     Active Substance: ZOLPIDEM TARTRATE
     Indication: PRODUCT USED FOR UNKNOWN INDICATION
     Dosage: 40 MG, QD, STARTDATO UKENDT, MEN SENEST I MAJ 2018, (STYRKE: UKENDT)
     Route: 065
  6. SEROQUEL [Suspect]
     Active Substance: QUETIAPINE FUMARATE
     Indication: SCHIZOPHRENIA
     Dosage: UNK (UKENDT STARTDATO, MEN I HVERT FALD F?R MARTS 2018, STYRKE: UKENDT, DOSIS: UKENDT)
     Route: 065
  7. RIVOTRIL [Concomitant]
     Active Substance: CLONAZEPAM
     Indication: PRODUCT USED FOR UNKNOWN INDICATION
     Dosage: UNK (STARTDATO UKENDT, MEN I HVERT FALD INDEN SEPTEMBER 2009, STYRKE: UKENDT, DOSIS: VARIERENDE)
     Route: 065
  8. DIAZEPAM. [Concomitant]
     Active Substance: DIAZEPAM
     Indication: PRODUCT USED FOR UNKNOWN INDICATION
     Dosage: UNK (STYRKE: UKENDT, DOSIS: UKENDT.)
     Route: 065
     Dates: end: 20181205
  9. STILNOCT [Concomitant]
     Active Substance: ZOLPIDEM TARTRATE
     Indication: PRODUCT USED FOR UNKNOWN INDICATION
     Dosage: UNK (STARTDATO UKENDT, MEN I HVERT FALD SIDEN FEBRUAR 2010, STYRKE: 10 MG, DOSIS: UKENDT)
     Route: 048
  10. CISORDINOL [Suspect]
     Active Substance: ZUCLOPENTHIXOL
     Indication: SCHIZOPHRENIA
     Dosage: UNK (STARTDATO UKENDT, MEN I HVERT FALD SENEST I 2015, STYRKE: UKENDT., DOSIS: UKENDT)
     Route: 065
  11. TRILAFON [Concomitant]
     Active Substance: PERPHENAZINE
     Indication: SCHIZOPHRENIA
     Dosage: UNK (STARTDATO UKENDT, MEN I HVERT FALD SENEST I 2011, STYRKE: UKENDT, DOSIS: UKENDT)
     Route: 065
  12. INVEGA [Concomitant]
     Active Substance: PALIPERIDONE
     Indication: SCHIZOPHRENIA
     Dosage: UNK (STYRKE: 6 MG, DOSIS: UKENDT)
     Route: 048
  13. NOZINAN [Concomitant]
     Active Substance: LEVOMEPROMAZINE
     Indication: SCHIZOPHRENIA
     Dosage: UNK (STARTDATO UKENDT, MEN INDEN SEPTEMBER 2009, STYRKE: 50 MG, DOSIS: 50 MG EFTER BEHOV, MAX 3XDGL)
     Route: 065
  14. FLUANXOL [Concomitant]
     Active Substance: FLUPENTIXOL
     Indication: SCHIZOPHRENIA
     Dosage: 20 MG, QD, STARTDATO UKENDT, MEN I HVERT FALD FRA MAJ 2018, (STYRKE: 5 MG)
     Route: 065
     Dates: end: 2018

REACTIONS (22)
  - Acrophobia [Unknown]
  - Inferiority complex [Unknown]
  - Nightmare [Unknown]
  - Persistent depressive disorder [Unknown]
  - Anxiety [Unknown]
  - Stress [Unknown]
  - Paralysis [Unknown]
  - Fatigue [Unknown]
  - Vomiting [Unknown]
  - Somnolence [Unknown]
  - Drug dependence [Unknown]
  - Mental disorder [Unknown]
  - Nausea [Unknown]
  - Alcohol intolerance [Unknown]
  - Anger [Unknown]
  - Akathisia [Unknown]
  - Malaise [Unknown]
  - Head discomfort [Unknown]
  - Hallucination, auditory [Unknown]
  - Delusion [Unknown]
  - Sexual dysfunction [Unknown]
  - Hunger [Unknown]

NARRATIVE: CASE EVENT DATE: 2009
